FAERS Safety Report 5830889-0 (Version None)
Quarter: 2008Q3

REPORT INFORMATION
  Report Type: 
  Country: None (occurrence: None)
  Receive Date: 20080801
  Receipt Date: 20080313
  Transmission Date: 20090109
  Serious: Yes (Other)
  Sender: FDA-Public Use
  Company Number: US-BRISTOL-MYERS SQUIBB COMPANY-14044622

PATIENT
  Age: 69 Year
  Sex: Female
  Weight: 82 kg

DRUGS (2)
  1. COUMADIN [Suspect]
     Indication: COAGULATION FACTOR V LEVEL ABNORMAL
     Dosage: INTERRUPTED ON 15JAN08
     Route: 048
     Dates: start: 20020101
  2. COUMADIN [Suspect]
     Indication: THROMBOSIS
     Dosage: INTERRUPTED ON 15JAN08
     Route: 048
     Dates: start: 20020101

REACTIONS (3)
  - HAEMATURIA [None]
  - INTERNATIONAL NORMALISED RATIO INCREASED [None]
  - PAIN [None]
